FAERS Safety Report 12430574 (Version 1)
Quarter: 2016Q2

REPORT INFORMATION
  Report Type: Spontaneous
  Country: CN (occurrence: CN)
  Receive Date: 20160602
  Receipt Date: 20160602
  Transmission Date: 20160815
  Serious: Yes (Hospitalization, Other)
  Sender: FDA-Public Use
  Company Number: CN-GILEAD-2016-0216692

PATIENT
  Age: 46 Year
  Sex: Male

DRUGS (1)
  1. ADEFOVIR DIPIVOXIL. [Suspect]
     Active Substance: ADEFOVIR DIPIVOXIL
     Indication: HEPATITIS B
     Dosage: 10 MG, QD
     Route: 065

REACTIONS (9)
  - Osteomalacia [Recovered/Resolved]
  - Musculoskeletal chest pain [Recovered/Resolved]
  - Costochondritis [Unknown]
  - Hypophosphataemia [Recovered/Resolved]
  - Pain [Recovered/Resolved]
  - Rheumatic disorder [Unknown]
  - Chest pain [Recovered/Resolved]
  - Intercostal neuralgia [Unknown]
  - Arthritis [Unknown]

NARRATIVE: CASE EVENT DATE: 201302
